FAERS Safety Report 9577835 (Version 2)
Quarter: 2013Q4

REPORT INFORMATION
  Report Type: Spontaneous
  Country: US (occurrence: US)
  Receive Date: 20131001
  Receipt Date: 20131001
  Transmission Date: 20140711
  Serious: No
  Sender: FDA-Public Use
  Company Number: US-AMGEN-USASP2013006850

PATIENT
  Age: 54 Year
  Sex: Female

DRUGS (1)
  1. ENBREL [Suspect]
     Indication: PSORIATIC ARTHROPATHY
     Dosage: 50 MG, EVERY WEEK
     Route: 058
     Dates: start: 2003

REACTIONS (3)
  - Dry skin [Recovered/Resolved]
  - Erythema [Not Recovered/Not Resolved]
  - Psoriasis [Unknown]
